FAERS Safety Report 11313012 (Version 1)
Quarter: 2015Q3

REPORT INFORMATION
  Report Type: Spontaneous
  Country: US (occurrence: US)
  Receive Date: 20150727
  Receipt Date: 20150727
  Transmission Date: 20151125
  Serious: No
  Sender: FDA-Public Use
  Company Number: US-ABBVIE-15P-163-1357210-00

PATIENT
  Sex: Female

DRUGS (3)
  1. COCONUT OIL [Suspect]
     Active Substance: COCONUT OIL
     Indication: PRODUCT USED FOR UNKNOWN INDICATION
     Route: 065
  2. CYTOMEL [Suspect]
     Active Substance: LIOTHYRONINE SODIUM
     Indication: HYPOTHYROIDISM
     Route: 065
  3. SYNTHROID [Suspect]
     Active Substance: LEVOTHYROXINE SODIUM
     Indication: HYPOTHYROIDISM
     Route: 065

REACTIONS (6)
  - Weight increased [Unknown]
  - Feeling cold [Unknown]
  - Feeling abnormal [Unknown]
  - Somnolence [Unknown]
  - Energy increased [Unknown]
  - Insomnia [Unknown]
